FAERS Safety Report 4359327-4 (Version None)
Quarter: 2004Q2

REPORT INFORMATION
  Report Type: 
  Country: None (occurrence: None)
  Receive Date: 20040517
  Receipt Date: 20040517
  Transmission Date: 20050107
  Serious: No
  Sender: FDA-Public Use
  Company Number: None

PATIENT
  Age: 74 Year
  Sex: Female
  Weight: 88.4514 kg

DRUGS (1)
  1. INVANZ [Suspect]
     Indication: PNEUMONIA
     Dosage: 1 GM Q 24
     Dates: start: 20040503, end: 20040510

REACTIONS (3)
  - DYSPNOEA [None]
  - PRURITUS [None]
  - RASH [None]
